FAERS Safety Report 5098003-X (Version None)
Quarter: 2006Q3

REPORT INFORMATION
  Report Type: 
  Country: None (occurrence: None)
  Receive Date: 20060905
  Receipt Date: 20060905
  Transmission Date: 20061208
  Serious: Yes (Other)
  Sender: FDA-Public Use
  Company Number: None

PATIENT
  Sex: Female
  Weight: 74.8435 kg

DRUGS (8)
  1. LYRICA [Suspect]
     Indication: PAIN
     Dosage: 150 MG  50 MG TID PO
     Route: 048
     Dates: start: 20060201, end: 20060501
  2. LYRICA [Suspect]
     Indication: RADICULOPATHY
     Dosage: 150 MG  50 MG TID PO
     Route: 048
     Dates: start: 20060201, end: 20060501
  3. DILAUDID [Concomitant]
  4. SOMA [Concomitant]
  5. HYDROCHLOROTHIAZIDE [Concomitant]
  6. LOTENSIN [Concomitant]
  7. LEXAPRO [Concomitant]
  8. XANAX [Concomitant]

REACTIONS (5)
  - CONFUSIONAL STATE [None]
  - DISTURBANCE IN ATTENTION [None]
  - MEMORY IMPAIRMENT [None]
  - PARANOIA [None]
  - SOMNOLENCE [None]
